FAERS Safety Report 4971180-4 (Version None)
Quarter: 2006Q1

REPORT INFORMATION
  Report Type: 
  Country: None (occurrence: None)
  Receive Date: 20060222
  Receipt Date: 20050204
  Transmission Date: 20060701
  Serious: Yes (Other)
  Sender: FDA-Public Use
  Company Number: HQWYE164808FEB05

PATIENT
  Age: 81 Year
  Sex: Female
  Weight: 62.2 kg

DRUGS (6)
  1. PROTONIX [Suspect]
     Dosage: 40 MG 1X PER 1 DAY, ORAL
     Route: 048
     Dates: start: 20041201, end: 20041201
  2. PRAVACHOL [Concomitant]
  3. ASACOL [Concomitant]
  4. ASPIRIN [Concomitant]
  5. UNSPECIFIED TOPICAL PRODUCT [Concomitant]
  6. CENTRUM SILVER (MULTIVITAMIN/MULTIMINERAL) [Concomitant]

REACTIONS (2)
  - PARAESTHESIA ORAL [None]
  - SWOLLEN TONGUE [None]
